FAERS Safety Report 8143880-9 (Version None)
Quarter: 2012Q1

REPORT INFORMATION
  Report Type: 
  Country: None (occurrence: None)
  Receive Date: 20120217
  Receipt Date: 20120203
  Transmission Date: 20120608
  Serious: Yes (Other)
  Sender: FDA-Public Use
  Company Number: US-RANBAXY-2012US-52527

PATIENT

DRUGS (2)
  1. LIPITOR [Suspect]
     Indication: PRODUCT USED FOR UNKNOWN INDICATION
     Dosage: UNK
     Route: 065
  2. ATORVASTATIN [Suspect]
     Indication: BLOOD CHOLESTEROL INCREASED
     Dosage: UNK
     Route: 065
     Dates: start: 20101001

REACTIONS (8)
  - PAIN IN EXTREMITY [None]
  - MUSCLE SPASMS [None]
  - DYSSTASIA [None]
  - BLOOD CHOLESTEROL INCREASED [None]
  - MYALGIA [None]
  - SCIATICA [None]
  - MUSCLE ATROPHY [None]
  - BONE PAIN [None]
